FAERS Safety Report 10248646 (Version 1)
Quarter: 2014Q2

REPORT INFORMATION
  Report Type: Spontaneous
  Country: CN (occurrence: CN)
  Receive Date: 20140620
  Receipt Date: 20140620
  Transmission Date: 20141212
  Serious: Yes (Other)
  Sender: FDA-Public Use
  Company Number: CN-ROCHE-1421285

PATIENT
  Age: 71 Year
  Sex: Male
  Weight: 75 kg

DRUGS (7)
  1. AVASTIN [Suspect]
     Indication: RECTAL CANCER
     Route: 041
     Dates: start: 20130622, end: 20130622
  2. AVASTIN [Suspect]
     Route: 041
     Dates: start: 20130706, end: 20130706
  3. ELOXATIN [Suspect]
     Indication: RECTAL CANCER
     Route: 041
     Dates: start: 20130706, end: 20130706
  4. FLUOROURACIL [Suspect]
     Indication: RECTAL CANCER
     Route: 041
     Dates: start: 20130706, end: 20130707
  5. FLUOROURACIL [Suspect]
     Route: 041
     Dates: start: 20130622, end: 20130622
  6. CALCIUM FOLINATE [Concomitant]
     Indication: RECTAL CANCER
     Route: 041
     Dates: start: 20130622, end: 20130623
  7. CALCIUM FOLINATE [Concomitant]
     Route: 041
     Dates: start: 20130706, end: 20130707

REACTIONS (1)
  - Bone marrow failure [Recovering/Resolving]
